FAERS Safety Report 11180609 (Version 2)
Quarter: 2015Q2

REPORT INFORMATION
  Report Type: Spontaneous
  Country: FR (occurrence: FR)
  Receive Date: 20150611
  Receipt Date: 20150616
  Transmission Date: 20150821
  Serious: Yes (Death, Hospitalization)
  Sender: FDA-Public Use
  Company Number: FR-PFIZER INC-2015193076

PATIENT
  Age: 79 Year
  Sex: Female

DRUGS (13)
  1. AUGMENTIN [Interacting]
     Active Substance: AMOXICILLIN\CLAVULANATE POTASSIUM
     Indication: DERMO-HYPODERMITIS
     Dosage: 3 G, UNK
     Route: 065
     Dates: start: 20150320, end: 20150324
  2. TAZOCILLINE [Suspect]
     Active Substance: PIPERACILLIN SODIUM\TAZOBACTAM SODIUM
     Indication: DERMO-HYPODERMITIS
     Dosage: UNK
     Route: 042
     Dates: start: 20150325, end: 20150403
  3. AMOXICILLIN TRIHYDRATE [Interacting]
     Active Substance: AMOXICILLIN
     Indication: DERMO-HYPODERMITIS
     Dosage: 3 G, DAILY
     Route: 065
     Dates: start: 20150320, end: 20150324
  4. PREVISCAN [Interacting]
     Active Substance: FLUINDIONE
     Dosage: 0.5 DF, 1X/DAY
     Route: 048
     Dates: start: 20150330, end: 20150403
  5. AZOPT [Concomitant]
     Active Substance: BRINZOLAMIDE
     Dosage: UNK
  6. CORDARONE [Interacting]
     Active Substance: AMIODARONE HYDROCHLORIDE
     Dosage: 1 DF, DAILY
     Route: 048
     Dates: end: 20150410
  7. PREVISCAN [Interacting]
     Active Substance: FLUINDIONE
     Indication: ATRIAL FIBRILLATION
     Dosage: 0.5 DF, DAILY
     Route: 048
     Dates: end: 20150325
  8. TAHOR [Concomitant]
     Active Substance: ATORVASTATIN CALCIUM
     Dosage: 10 MG, DAILY
  9. CONTRAMAL [Interacting]
     Active Substance: TRAMADOL HYDROCHLORIDE
     Dosage: UNK
     Route: 042
     Dates: start: 20150405, end: 20150410
  10. LASILIX [Concomitant]
     Active Substance: FUROSEMIDE
     Dosage: 40 MG, DAILY
  11. TRAVATAN [Concomitant]
     Active Substance: TRAVOPROST
     Dosage: UNK
  12. TRAMADOL ACTAVIS [Interacting]
     Active Substance: TRAMADOL
     Dosage: 150 MG, UNK
     Route: 048
     Dates: start: 20150326, end: 20150403
  13. AMOXICILLINE PANPHARMA [Interacting]
     Active Substance: AMOXICILLIN
     Indication: DERMO-HYPODERMITIS
     Dosage: 5 G, DAILY
     Route: 042
     Dates: start: 20150404, end: 20150410

REACTIONS (3)
  - Drug interaction [Fatal]
  - Accidental overdose [Fatal]
  - Muscle haemorrhage [Fatal]

NARRATIVE: CASE EVENT DATE: 20150403
